FAERS Safety Report 6945156-1 (Version None)
Quarter: 2010Q3

REPORT INFORMATION
  Report Type: 
  Country: None (occurrence: None)
  Receive Date: 20100827
  Receipt Date: 20100819
  Transmission Date: 20110219
  Serious: Yes (Other)
  Sender: FDA-Public Use
  Company Number: US-ABBOTT-10P-163-0665172-00

PATIENT
  Sex: Male
  Weight: 108.96 kg

DRUGS (6)
  1. HUMIRA [Suspect]
     Indication: PSORIATIC ARTHROPATHY
     Dates: start: 20050101
  2. HUMIRA [Suspect]
     Indication: RHEUMATOID ARTHRITIS
  3. VICODIN [Suspect]
     Indication: HYPERHIDROSIS
     Dates: start: 20080101
  4. CLONIDINE [Suspect]
     Indication: HYPERHIDROSIS
  5. AREVA [Concomitant]
     Indication: RHEUMATOID ARTHRITIS
  6. TOPROL-XL [Concomitant]
     Indication: HYPERTENSION

REACTIONS (5)
  - BLOOD GLUCOSE INCREASED [None]
  - BLOOD PRESSURE INCREASED [None]
  - GASTROENTERITIS VIRAL [None]
  - HEADACHE [None]
  - HYPERHIDROSIS [None]
